FAERS Safety Report 9348057 (Version 1)
Quarter: 2013Q2

REPORT INFORMATION
  Report Type: Report from Study
  Country: CA (occurrence: CA)
  Receive Date: 20130614
  Receipt Date: 20130614
  Transmission Date: 20140414
  Serious: Yes (Other)
  Sender: FDA-Public Use
  Company Number: CA-JNJFOC-20130601580

PATIENT
  Age: 49 Year
  Sex: Male
  Weight: 85 kg

DRUGS (6)
  1. REMICADE [Suspect]
     Indication: COLITIS ULCERATIVE
     Route: 042
     Dates: end: 20130611
  2. REMICADE [Suspect]
     Indication: COLITIS ULCERATIVE
     Route: 042
     Dates: start: 20130416
  3. REMICADE [Suspect]
     Indication: COLITIS ULCERATIVE
     Dosage: LOADING DOSE 3 (LD3)
     Route: 042
     Dates: start: 20130531
  4. IMURAN [Concomitant]
     Route: 048
  5. PREDNISONE [Concomitant]
     Route: 048
  6. PREDNISONE [Concomitant]
     Route: 048

REACTIONS (1)
  - Diarrhoea [Not Recovered/Not Resolved]
